FAERS Safety Report 9334055 (Version 2)
Quarter: 2013Q3

REPORT INFORMATION
  Report Type: Spontaneous
  Country: US (occurrence: US)
  Receive Date: 20130606
  Receipt Date: 20130715
  Transmission Date: 20140515
  Serious: Yes (Other)
  Sender: FDA-Public Use
  Company Number: US-AMGEN-USASP2013005060

PATIENT
  Age: 74 Year
  Sex: Female

DRUGS (4)
  1. PROLIA [Suspect]
     Indication: OSTEOPOROSIS POSTMENOPAUSAL
     Dosage: UNK UNK, Q6MO
     Dates: start: 201101
  2. BENADRYL                           /00000402/ [Concomitant]
  3. CALCIUM [Concomitant]
     Dosage: 1200 MG, QD
  4. VITAMINS                           /00067501/ [Concomitant]

REACTIONS (3)
  - Skin cancer [Recovering/Resolving]
  - Feeling abnormal [Recovering/Resolving]
  - Musculoskeletal pain [Recovering/Resolving]
